FAERS Safety Report 22083085 (Version 1)
Quarter: 2023Q1

REPORT INFORMATION
  Report Type: Spontaneous
  Country: US (occurrence: US)
  Receive Date: 20230310
  Receipt Date: 20230310
  Transmission Date: 20230417
  Serious: No
  Sender: FDA-Public Use
  Company Number: US-TERSERA THERAPEUTICS LLC-2023TRS000699

PATIENT

DRUGS (1)
  1. XERMELO [Suspect]
     Active Substance: TELOTRISTAT ETHYL
     Indication: Carcinoid tumour of the small bowel
     Dosage: 250 MG, OD (1 TABLET BY MOUTH ONCE DAILY)
     Route: 048
     Dates: start: 20211229

REACTIONS (1)
  - Abdominal pain upper [Not Recovered/Not Resolved]
